FAERS Safety Report 4711418-1 (Version None)
Quarter: 2005Q3

REPORT INFORMATION
  Report Type: 
  Country: None (occurrence: None)
  Receive Date: 20050711
  Receipt Date: 20050628
  Transmission Date: 20060218
  Serious: Yes (Other)
  Sender: FDA-Public Use
  Company Number: US015526

PATIENT
  Age: 62 Year
  Sex: Female

DRUGS (1)
  1. GABITRIL [Suspect]
     Indication: ANXIETY
     Dosage: 4 MG TID ORAL
     Route: 048

REACTIONS (2)
  - GRAND MAL CONVULSION [None]
  - URINARY INCONTINENCE [None]
